FAERS Safety Report 10084077 (Version 3)
Quarter: 2014Q2

REPORT INFORMATION
  Report Type: Spontaneous
  Country: GB (occurrence: None)
  Receive Date: 20140415
  Receipt Date: 20140605
  Transmission Date: 20141212
  Serious: Yes (Other)
  Sender: FDA-Public Use
  Company Number: AUR-APL-2014-04307

PATIENT
  Age: 76 Year
  Sex: Female
  Weight: 91 kg

DRUGS (5)
  1. SIMVASTATIN [Suspect]
     Indication: BLOOD CHOLESTEROL INCREASED
     Dosage: 40MG, ORAL, AT NIGHT
     Route: 048
     Dates: start: 20051006, end: 20120305
  2. PRAVASTATIN [Suspect]
     Indication: BLOOD CHOLESTEROL INCREASED
     Dosage: 20MG, ORAL, AT NIGHT
     Route: 048
     Dates: start: 20120619, end: 20120706
  3. BENDROFLUMETHIAZIDE (BENDROFLUMETHIAZIDE) [Concomitant]
  4. BISOPROLOL (BISOPROLOL) [Concomitant]
  5. EZETIMIBE (EZETIMIBE) (TABLET) [Concomitant]

REACTIONS (2)
  - Drug intolerance [None]
  - Pancreatitis acute [None]
